FAERS Safety Report 14288608 (Version 8)
Quarter: 2018Q1

REPORT INFORMATION
  Report Type: Report from Study
  Country: None (occurrence: ES)
  Receive Date: 20171215
  Receipt Date: 20180213
  Transmission Date: 20180509
  Serious: Yes (Death, Hospitalization, Other)
  Sender: FDA-Public Use
  Company Number: ES-ABBVIE-17K-144-2194155-00

PATIENT
  Age: 85 Year
  Sex: Female

DRUGS (2)
  1. DUODOPA [Suspect]
     Active Substance: CARBIDOPA\LEVODOPA
     Indication: PARKINSON^S DISEASE
     Route: 050
     Dates: start: 20140709
  2. DUODOPA [Suspect]
     Active Substance: CARBIDOPA\LEVODOPA
     Dosage: DECREASED CONTINUOUS DOSAGE ON 0.2 ML
     Route: 050

REACTIONS (6)
  - Pneumonia [Not Recovered/Not Resolved]
  - Bladder neoplasm [Fatal]
  - General physical health deterioration [Fatal]
  - Anaemia [Fatal]
  - Haematuria [Not Recovered/Not Resolved]
  - Dyskinesia [Recovered/Resolved]

NARRATIVE: CASE EVENT DATE: 201711
